FAERS Safety Report 24032047 (Version 1)
Quarter: 2024Q2

REPORT INFORMATION
  Report Type: Spontaneous
  Country: US (occurrence: US)
  Receive Date: 20240630
  Receipt Date: 20240630
  Transmission Date: 20240716
  Serious: Yes (Life-Threatening, Hospitalization, Other)
  Sender: FDA-Public Use
  Company Number: US-MLMSERVICE-20240619-PI106995-00111-1

PATIENT
  Age: 15 Year
  Sex: Male

DRUGS (1)
  1. SULFAMETHOXAZOLE\TRIMETHOPRIM [Suspect]
     Active Substance: SULFAMETHOXAZOLE\TRIMETHOPRIM
     Indication: Impetigo
     Dosage: UNK
     Route: 065

REACTIONS (9)
  - Diffuse alveolar damage [Unknown]
  - Pulmonary interstitial emphysema syndrome [Unknown]
  - Acute respiratory failure [Unknown]
  - Pulmonary toxicity [Unknown]
  - Pneumomediastinum [Unknown]
  - Interstitial lung disease [Unknown]
  - Pulmonary fibrosis [Unknown]
  - Subcutaneous emphysema [Unknown]
  - Pleural thickening [Unknown]
